FAERS Safety Report 7167924-6 (Version None)
Quarter: 2010Q4

REPORT INFORMATION
  Report Type: 
  Country: None (occurrence: None)
  Receive Date: 20101216
  Receipt Date: 20101203
  Transmission Date: 20110411
  Serious: No
  Sender: FDA-Public Use
  Company Number: US-PFIZER INC-2010155943

PATIENT
  Age: 40 Year
  Sex: Female
  Weight: 58.503 kg

DRUGS (1)
  1. ADVIL CONGESTION RELIEF [Suspect]
     Indication: NASAL CONGESTION
     Dosage: 1 DF, EVERY 4 HRS
     Route: 048

REACTIONS (1)
  - DRUG EFFECT DECREASED [None]
